FAERS Safety Report 5256580-X (Version None)
Quarter: 2007Q1

REPORT INFORMATION
  Report Type: 
  Country: None (occurrence: None)
  Receive Date: 20070306
  Receipt Date: 20070227
  Transmission Date: 20070707
  Serious: Yes (Disabling)
  Sender: FDA-Public Use
  Company Number: 2007CG00340

PATIENT
  Age: 50 Year
  Sex: Female

DRUGS (2)
  1. ARIMIDEX [Suspect]
     Indication: BREAST CANCER FEMALE
     Route: 048
     Dates: start: 20070120
  2. FEMARA [Concomitant]
     Indication: BREAST CANCER FEMALE
     Dates: start: 20070102, end: 20070120

REACTIONS (3)
  - ARTHRALGIA [None]
  - BACK PAIN [None]
  - POLYARTHRITIS [None]
